FAERS Safety Report 17345768 (Version 1)
Quarter: 2020Q1

REPORT INFORMATION
  Report Type: Spontaneous
  Country: US (occurrence: US)
  Receive Date: 20200129
  Receipt Date: 20200129
  Transmission Date: 20200409
  Serious: Yes (Hospitalization)
  Sender: FDA-Public Use
  Company Number: US-SUNOVION-2020SUN000285

PATIENT
  Age: 74 Year
  Sex: Female

DRUGS (1)
  1. LONHALA MAGNAIR [Suspect]
     Active Substance: GLYCOPYRROLATE
     Dosage: 25 ?G, 60 VIALS BID
     Route: 055

REACTIONS (3)
  - Hypertension [Unknown]
  - Hypoacusis [Unknown]
  - Malaise [Unknown]
